FAERS Safety Report 9507900 (Version 1)
Quarter: 2013Q3

REPORT INFORMATION
  Report Type: Spontaneous
  Country: US (occurrence: None)
  Receive Date: 20130906
  Receipt Date: 20130906
  Transmission Date: 20140515
  Serious: Yes (Hospitalization)
  Sender: FDA-Public Use
  Company Number: None

PATIENT
  Age: 62 Year
  Sex: Female
  Weight: 71.8 kg

DRUGS (3)
  1. EVEROLIMUS [Suspect]
     Indication: IMMUNOSUPPRESSION
     Dosage: 1MG BID ORAL
     Route: 048
     Dates: start: 20130709, end: 20130815
  2. TACROLIMUS [Concomitant]
  3. PREDNISONE [Concomitant]

REACTIONS (3)
  - Pleural effusion [None]
  - Fluid overload [None]
  - Perinephric effusion [None]
